FAERS Safety Report 7283033-X (Version None)
Quarter: 2011Q1

REPORT INFORMATION
  Report Type: 
  Country: None (occurrence: None)
  Receive Date: 20110209
  Receipt Date: 20101216
  Transmission Date: 20110831
  Serious: Yes (Other)
  Sender: FDA-Public Use
  Company Number: US-BAYER-201029587NA

PATIENT
  Sex: Female

DRUGS (4)
  1. REGLAN [Concomitant]
     Dosage: UNK
     Dates: start: 20070101
  2. PREVACID [Concomitant]
  3. YAZ [Suspect]
     Indication: PRODUCT USED FOR UNKNOWN INDICATION
     Dates: start: 20071008
  4. UNCODEABLE ^UNCLASSIFIABLE^ [Concomitant]

REACTIONS (4)
  - CHOLELITHIASIS [None]
  - CHOLECYSTITIS CHRONIC [None]
  - ABDOMINAL PAIN UPPER [None]
  - BILIARY COLIC [None]
